FAERS Safety Report 7410011-X (Version None)
Quarter: 2011Q2

REPORT INFORMATION
  Report Type: 
  Country: None (occurrence: None)
  Receive Date: 20110404
  Receipt Date: 20110321
  Transmission Date: 20111010
  Serious: Yes (Hospitalization)
  Sender: FDA-Public Use
  Company Number: 2011030115

PATIENT
  Age: 54 Year
  Sex: Male

DRUGS (6)
  1. DILAUDID [Concomitant]
  2. ONSOLIS [Suspect]
     Dosage: (400 MCG,UP TO 4 TIMES DAILY PRN),BU
     Route: 002
     Dates: start: 20110210
  3. FENTANYL [Concomitant]
  4. RAMIPRIL [Concomitant]
  5. NEXIUM [Concomitant]
  6. ONSOLIS [Suspect]
     Indication: CANCER PAIN
     Dosage: TITRATE UP TO 4-200 MCG FILMS (UP TO 4 TIMES DAILY PRN),BU
     Route: 002
     Dates: start: 20110121, end: 20110210

REACTIONS (4)
  - BACK PAIN [None]
  - METASTASES TO BONE [None]
  - DRUG EFFECT DECREASED [None]
  - SPINAL FRACTURE [None]
